FAERS Safety Report 23100653 (Version 1)
Quarter: 2023Q4

REPORT INFORMATION
  Report Type: Spontaneous
  Country: CN (occurrence: CN)
  Receive Date: 20231024
  Receipt Date: 20231024
  Transmission Date: 20240109
  Serious: Yes (Other)
  Sender: FDA-Public Use
  Company Number: CN-PFIZER INC-PV202300173586

PATIENT
  Age: 4 Year
  Sex: Female
  Weight: 16.3 kg

DRUGS (4)
  1. EPIRUBICIN [Suspect]
     Active Substance: EPIRUBICIN
     Indication: Acute lymphocytic leukaemia
     Dosage: 20 MG, 1X/DAY + 0.9% SODIUM CHLORIDE INJECTION 250ML MAINTAINED FOR 3 HRS
     Route: 041
     Dates: start: 20230919, end: 20230920
  2. DEXRAZOXANE [Suspect]
     Active Substance: DEXRAZOXANE
     Indication: Acute lymphocytic leukaemia
     Dosage: 200 MG, 1X/DAY+ 0.9% SODIUM CHLORIDE INJECTION 100ML
     Route: 041
     Dates: start: 20230919, end: 20230920
  3. ROCEPHIN [Suspect]
     Active Substance: CEFTRIAXONE SODIUM
     Indication: Acute lymphocytic leukaemia
     Dosage: 1 G, 1X/DAY + 4:1 GLUCOSE SODIUM CHLORIDE INJECTION 100ML
     Route: 041
     Dates: start: 20230909, end: 20230915
  4. VINDESINE SULFATE [Suspect]
     Active Substance: VINDESINE SULFATE
     Indication: Acute lymphocytic leukaemia
     Dosage: 2 MG, 1X/DAY + 0.9% SODIUM CHLORIDE INJECTION 50ML
     Route: 041
     Dates: start: 20230919, end: 20230919

REACTIONS (1)
  - Hepatic function abnormal [Recovered/Resolved]

NARRATIVE: CASE EVENT DATE: 20230925
